FAERS Safety Report 13745673 (Version 2)
Quarter: 2017Q3

REPORT INFORMATION
  Report Type: Spontaneous
  Country: US (occurrence: US)
  Receive Date: 20170712
  Receipt Date: 20170905
  Transmission Date: 20171127
  Serious: No
  Sender: FDA-Public Use
  Company Number: US-BAYER-2017-133339

PATIENT
  Age: 72 Year
  Sex: Female
  Weight: 67 kg

DRUGS (3)
  1. MIRALAX [Suspect]
     Active Substance: POLYETHYLENE GLYCOL 3350
     Indication: GASTROINTESTINAL DISORDER
     Dosage: SPOONFUL IN THE MORNING,1SPOONFUL IN THE EVENING
     Route: 048
     Dates: start: 2014, end: 20170711
  2. MIRALAX [Suspect]
     Active Substance: POLYETHYLENE GLYCOL 3350
     Indication: NAUSEA
  3. MIRALAX [Suspect]
     Active Substance: POLYETHYLENE GLYCOL 3350
     Indication: PROPHYLAXIS
     Route: 048
     Dates: start: 2014, end: 20170831

REACTIONS (7)
  - Inappropriate prescribing [Unknown]
  - Incorrect drug administration duration [Unknown]
  - Underdose [Unknown]
  - Product use in unapproved indication [Unknown]
  - Product use in unapproved indication [Unknown]
  - Product closure removal difficult [None]
  - Product use issue [Unknown]

NARRATIVE: CASE EVENT DATE: 2014
